FAERS Safety Report 12350469 (Version 1)
Quarter: 2016Q2

REPORT INFORMATION
  Report Type: Spontaneous
  Country: US (occurrence: None)
  Receive Date: 20160509
  Receipt Date: 20160509
  Transmission Date: 20160815
  Serious: No
  Sender: FDA-Public Use
  Company Number: None

PATIENT
  Age: 61 Year
  Sex: Male
  Weight: 112.1 kg

DRUGS (1)
  1. LURASIDONE [Suspect]
     Active Substance: LURASIDONE
     Indication: BIPOLAR I DISORDER
     Route: 048
     Dates: start: 20150416, end: 20151015

REACTIONS (2)
  - Leukopenia [None]
  - Extrapyramidal disorder [None]

NARRATIVE: CASE EVENT DATE: 20151118
